FAERS Safety Report 21183058 (Version 1)
Quarter: 2022Q3

REPORT INFORMATION
  Report Type: Report from Study
  Country: US (occurrence: None)
  Receive Date: 20220808
  Receipt Date: 20220808
  Transmission Date: 20221027
  Serious: Yes (Other)
  Sender: FDA-Public Use
  Company Number: US-Merck Healthcare KGaA-9340853

PATIENT
  Sex: Male

DRUGS (1)
  1. REBIF [Suspect]
     Active Substance: INTERFERON BETA-1A
     Indication: Multiple sclerosis
     Route: 058
     Dates: start: 20171226

REACTIONS (5)
  - Sinus disorder [Unknown]
  - Seasonal allergy [Unknown]
  - Dust allergy [Unknown]
  - Mycotic allergy [Unknown]
  - Peripheral swelling [Unknown]
